FAERS Safety Report 18881357 (Version 1)
Quarter: 2021Q1

REPORT INFORMATION
  Report Type: Spontaneous
  Country: CA (occurrence: CA)
  Receive Date: 20210211
  Receipt Date: 20210211
  Transmission Date: 20210420
  Serious: Yes (Life-Threatening, Hospitalization)
  Sender: FDA-Public Use
  Company Number: NVSC2021CA031868

PATIENT
  Age: 77 Year
  Sex: Female

DRUGS (8)
  1. BACLOFEN. [Concomitant]
     Active Substance: BACLOFEN
     Indication: PRODUCT USED FOR UNKNOWN INDICATION
     Dosage: UNK
     Route: 065
  2. OXAZEPAM. [Concomitant]
     Active Substance: OXAZEPAM
     Indication: PRODUCT USED FOR UNKNOWN INDICATION
     Dosage: UNK
     Route: 065
  3. TRAMADOL HYDROCHLORIDE. [Concomitant]
     Active Substance: TRAMADOL HYDROCHLORIDE
     Indication: PRODUCT USED FOR UNKNOWN INDICATION
     Dosage: UNK
     Route: 065
  4. APO?LAMOTRIGINE [Suspect]
     Active Substance: LAMOTRIGINE
     Indication: SUNCT SYNDROME
     Dosage: 25 MG, BID (2 EVERY 1 DAYS)
     Route: 048
  5. APO?LAMOTRIGINE [Suspect]
     Active Substance: LAMOTRIGINE
     Dosage: 50 MG
     Route: 048
  6. APO?LAMOTRIGINE [Suspect]
     Active Substance: LAMOTRIGINE
     Dosage: 75 MG
     Route: 048
  7. PRAVACHOL [Concomitant]
     Active Substance: PRAVASTATIN SODIUM
     Indication: PRODUCT USED FOR UNKNOWN INDICATION
     Dosage: UNK
     Route: 065
  8. SANDOZ?CARBAMAZEPINE CR [Suspect]
     Active Substance: CARBAMAZEPINE
     Indication: SUNCT SYNDROME
     Dosage: 200 MG, BID (2 EVERY 1 DAY)
     Route: 065

REACTIONS (3)
  - Blood creatine phosphokinase increased [Unknown]
  - Hyperthermia [Unknown]
  - Myalgia [Unknown]
